FAERS Safety Report 21282989 (Version 1)
Quarter: 2022Q3

REPORT INFORMATION
  Report Type: Spontaneous
  Country: AT (occurrence: AT)
  Receive Date: 20220901
  Receipt Date: 20220901
  Transmission Date: 20221026
  Serious: Yes (Death, Other)
  Sender: FDA-Public Use
  Company Number: AT-teijin-202201654_FE_P_1

PATIENT

DRUGS (2)
  1. FEBUXOSTAT [Suspect]
     Active Substance: FEBUXOSTAT
     Indication: Hyperuricaemia
     Dosage: UNK
     Route: 065
  2. FEBUXOSTAT [Suspect]
     Active Substance: FEBUXOSTAT
     Indication: Gout

REACTIONS (6)
  - Death [Fatal]
  - Subarachnoid haemorrhage [Unknown]
  - Cerebral haemorrhage [Unknown]
  - Ischaemic stroke [Unknown]
  - Myocardial infarction [Unknown]
  - Angina pectoris [Unknown]
